FAERS Safety Report 17622980 (Version 1)
Quarter: 2020Q2

REPORT INFORMATION
  Report Type: Spontaneous
  Country: FR (occurrence: FR)
  Receive Date: 20200403
  Receipt Date: 20200403
  Transmission Date: 20200713
  Serious: Yes (Hospitalization, Other)
  Sender: FDA-Public Use
  Company Number: FR-OTSUKA-2020_005692

PATIENT
  Sex: Female
  Weight: 80 kg

DRUGS (2)
  1. ARIPIPRAZOLE. [Suspect]
     Active Substance: ARIPIPRAZOLE
     Indication: DELUSION
     Dosage: 5 MG, QD
     Route: 048
  2. LOXAPAC [Suspect]
     Active Substance: LOXAPINE
     Indication: DELUSION
     Dosage: 75 MG, QD (25 MG, 3 TIMES A DAY (MORNING, NOON AND EVENING)
     Route: 065

REACTIONS (6)
  - Dystonia [Recovered/Resolved]
  - Dyspnoea [Recovered/Resolved]
  - Cyanosis central [Recovered/Resolved]
  - Product use in unapproved indication [Unknown]
  - Dysphagia [Recovered/Resolved]
  - Swollen tongue [Recovered/Resolved]
